FAERS Safety Report 19461121 (Version 1)
Quarter: 2021Q2

REPORT INFORMATION
  Report Type: Spontaneous
  Country: JP (occurrence: JP)
  Receive Date: 20210625
  Receipt Date: 20210625
  Transmission Date: 20210717
  Serious: Yes (Hospitalization)
  Sender: FDA-Public Use
  Company Number: JP-TAKEDA-2021TJP041861

PATIENT
  Age: 7 Decade
  Sex: Male

DRUGS (1)
  1. ALUNBRIG [Suspect]
     Active Substance: BRIGATINIB
     Indication: LUNG NEOPLASM MALIGNANT
     Dosage: 180 MILLIGRAM
     Route: 048
     Dates: start: 20210428

REACTIONS (3)
  - Amylase increased [Not Recovered/Not Resolved]
  - Condition aggravated [Unknown]
  - Pleural effusion [Unknown]

NARRATIVE: CASE EVENT DATE: 202106
